FAERS Safety Report 11270696 (Version 1)
Quarter: 2015Q3

REPORT INFORMATION
  Report Type: Spontaneous
  Country: GB (occurrence: GB)
  Receive Date: 20150714
  Receipt Date: 20150714
  Transmission Date: 20151125
  Serious: Yes (Disabling)
  Sender: FDA-Public Use
  Company Number: GB-FRESENIUS KABI-FK201501214

PATIENT
  Age: 74 Year
  Sex: Female

DRUGS (33)
  1. ATENOLOL. [Concomitant]
     Active Substance: ATENOLOL
     Dates: start: 2013
  2. EURAX [Concomitant]
     Active Substance: CROTAMITON
     Route: 061
     Dates: start: 20140724
  3. COLOFAC [Concomitant]
     Active Substance: MEBEVERINE HYDROCHLORIDE
     Dates: start: 2013
  4. CYCLIZINE [Concomitant]
     Active Substance: CYCLIZINE
     Dates: start: 20131227, end: 20140102
  5. METOCLOPRAMIDE. [Concomitant]
     Active Substance: METOCLOPRAMIDE
     Dates: start: 20131213, end: 20131218
  6. HERCEPTIN [Suspect]
     Active Substance: TRASTUZUMAB
     Indication: HER-2 POSITIVE BREAST CANCER
     Route: 042
     Dates: start: 20131129, end: 20131129
  7. HYDROCORTISONE. [Concomitant]
     Active Substance: HYDROCORTISONE
     Dates: start: 20140724
  8. HERCEPTIN [Suspect]
     Active Substance: TRASTUZUMAB
     Route: 042
     Dates: end: 20150113
  9. COCODAMOL [Concomitant]
     Active Substance: ACETAMINOPHEN\CODEINE PHOSPHATE
     Indication: PAIN
     Dates: start: 2013
  10. RAMIPRIL. [Concomitant]
     Active Substance: RAMIPRIL
     Dates: start: 2013, end: 20140310
  11. ROSUVASTATIN [Concomitant]
     Active Substance: ROSUVASTATIN
     Dates: start: 2013
  12. VICTOZA [Concomitant]
     Active Substance: LIRAGLUTIDE
     Dates: start: 2013
  13. CODEINE PHOSPHATE [Concomitant]
     Active Substance: CODEINE PHOSPHATE
     Dates: start: 20131227, end: 20140102
  14. CYCLIZINE [Concomitant]
     Active Substance: CYCLIZINE
     Dates: start: 20140328, end: 20140404
  15. PACLITAXEL (MANUFACTURER UNKNOWN) [Suspect]
     Active Substance: PACLITAXEL
     Indication: HER-2 POSITIVE BREAST CANCER
     Route: 042
     Dates: start: 20131129
  16. GLICLAZIDE [Concomitant]
     Active Substance: GLICLAZIDE
     Dates: start: 2013
  17. SANDO K [Concomitant]
     Dates: start: 20131227, end: 20131231
  18. PERTUZUMAB [Suspect]
     Active Substance: PERTUZUMAB
     Indication: HER-2 POSITIVE BREAST CANCER
     Route: 042
     Dates: start: 20131129, end: 20131129
  19. AMITRIPTYLINE [Concomitant]
     Active Substance: AMITRIPTYLINE
     Dates: start: 2013
  20. HUMULIN NOS [Concomitant]
     Active Substance: INSULIN HUMAN
     Dates: start: 2013
  21. PIRITON [Concomitant]
     Active Substance: CHLORPHENIRAMINE MALEATE
     Dates: start: 20140724
  22. DEXAMETHASONE. [Concomitant]
     Active Substance: DEXAMETHASONE
  23. ASPIRIN. [Concomitant]
     Active Substance: ASPIRIN
     Dates: start: 2013
  24. LANSOPRAZOLE. [Concomitant]
     Active Substance: LANSOPRAZOLE
     Dates: start: 2013
  25. LOPERAMIDE [Concomitant]
     Active Substance: LOPERAMIDE
     Dates: start: 20131227, end: 20140102
  26. NICORANDIL [Concomitant]
     Active Substance: NICORANDIL
     Dates: start: 2013
  27. PEPPERMINT OIL [Concomitant]
     Active Substance: PEPPERMINT OIL
     Dates: start: 2013
  28. CYCLIZINE [Concomitant]
     Active Substance: CYCLIZINE
     Dates: start: 20140110, end: 20140124
  29. CYCLIZINE [Concomitant]
     Active Substance: CYCLIZINE
     Dates: start: 20140214, end: 20140221
  30. PERTUZUMAB [Suspect]
     Active Substance: PERTUZUMAB
     Route: 042
     Dates: end: 20150113
  31. CHLORPHENIRAMINE. [Concomitant]
     Active Substance: CHLORPHENIRAMINE
     Dates: start: 20131129, end: 20140411
  32. RANITIDINE [Concomitant]
     Active Substance: RANITIDINE\RANITIDINE HYDROCHLORIDE
     Dates: start: 20131129, end: 20140411
  33. CYCLIZINE [Concomitant]
     Active Substance: CYCLIZINE
     Dates: start: 20140307, end: 20140314

REACTIONS (1)
  - Crohn^s disease [Not Recovered/Not Resolved]

NARRATIVE: CASE EVENT DATE: 20150116
